FAERS Safety Report 9057767 (Version 1)
Quarter: 2013Q1

REPORT INFORMATION
  Report Type: Spontaneous
  Country: US (occurrence: US)
  Receive Date: 20130204
  Receipt Date: 20130204
  Transmission Date: 20140127
  Serious: Yes (Hospitalization, Other)
  Sender: FDA-Public Use
  Company Number: US-ASTRAZENECA-2013SE05833

PATIENT
  Age: 73 Year
  Sex: Male
  Weight: 81.9 kg

DRUGS (9)
  1. BRILINTA [Suspect]
     Indication: STENT PLACEMENT
     Route: 048
     Dates: start: 20130118, end: 20130119
  2. ASPIRIN [Concomitant]
     Indication: CARDIAC DISORDER
  3. PLAVIX [Concomitant]
  4. PLAVIX [Concomitant]
     Dosage: GENERIC
  5. LOSART HCTZ [Concomitant]
     Indication: BLOOD PRESSURE ABNORMAL
  6. FIBER OTC SUPPLEMENTS [Concomitant]
  7. CARVEDILOL [Concomitant]
     Indication: CARDIAC DISORDER
     Dates: start: 2009
  8. ATORVASTATIN [Concomitant]
     Indication: BLOOD CHOLESTEROL ABNORMAL
     Dates: start: 201301
  9. LOVASTATIN [Concomitant]
     Indication: BLOOD CHOLESTEROL ABNORMAL
     Dates: start: 2006

REACTIONS (9)
  - Insomnia [Recovered/Resolved]
  - Respiratory disorder [Recovered/Resolved]
  - Sleep apnoea syndrome [Recovered/Resolved]
  - Blood pressure increased [Recovered/Resolved]
  - Heart rate increased [Recovered/Resolved]
  - Anxiety [Recovered/Resolved]
  - Flushing [Recovered/Resolved]
  - Epistaxis [Recovered/Resolved]
  - Dyspnoea [Recovered/Resolved]
